FAERS Safety Report 9339027 (Version 1)
Quarter: 2013Q2

REPORT INFORMATION
  Report Type: Spontaneous
  Country: US (occurrence: None)
  Receive Date: 20130606
  Receipt Date: 20130606
  Transmission Date: 20140414
  Serious: Yes (Hospitalization)
  Sender: FDA-Public Use
  Company Number: None

PATIENT
  Age: 48 None
  Sex: Female
  Weight: 137.44 kg

DRUGS (1)
  1. ULORIC [Suspect]
     Indication: GOUT
     Dates: start: 20130320, end: 20130509

REACTIONS (18)
  - Blood creatinine increased [None]
  - Rash [None]
  - Dehydration [None]
  - Decreased appetite [None]
  - Vision blurred [None]
  - Memory impairment [None]
  - Disturbance in attention [None]
  - Illiteracy [None]
  - Cognitive disorder [None]
  - Fatigue [None]
  - Muscle fatigue [None]
  - Dysgeusia [None]
  - Bladder disorder [None]
  - Gout [None]
  - Contusion [None]
  - Muscle spasms [None]
  - Hair disorder [None]
  - Nail growth abnormal [None]
